FAERS Safety Report 7597756-6 (Version None)
Quarter: 2011Q3

REPORT INFORMATION
  Report Type: 
  Country: None (occurrence: None)
  Receive Date: 20110708
  Receipt Date: 20110629
  Transmission Date: 20111222
  Serious: Yes (Other)
  Sender: FDA-Public Use
  Company Number: IT-GLAXOSMITHKLINE-B0731413A

PATIENT
  Sex: Female

DRUGS (1)
  1. PAROXETINE HYDROCHLORIDE [Suspect]
     Indication: PANIC DISORDER
     Route: 065
     Dates: start: 20110501, end: 20110629

REACTIONS (2)
  - ERYTHEMA MULTIFORME [None]
  - SUNBURN [None]
